FAERS Safety Report 6037371-9 (Version None)
Quarter: 2009Q1

REPORT INFORMATION
  Report Type: 
  Country: None (occurrence: None)
  Receive Date: 20090114
  Receipt Date: 20090109
  Transmission Date: 20090719
  Serious: Yes (Hospitalization)
  Sender: FDA-Public Use
  Company Number: CH-AMGEN-UK266723

PATIENT
  Sex: Male
  Weight: 100 kg

DRUGS (28)
  1. PANITUMUMAB [Suspect]
     Indication: COLORECTAL CANCER
     Route: 042
     Dates: start: 20080107, end: 20080204
  2. 5-FU [Concomitant]
     Dates: start: 20080107, end: 20080204
  3. OXALIPLATIN [Concomitant]
     Dates: start: 20080107, end: 20080204
  4. LEUCOVORIN CALCIUM [Concomitant]
     Dates: start: 20080107, end: 20080204
  5. METFORMIN HCL [Concomitant]
     Dates: start: 19900101
  6. GLIBENCLAMIDE [Concomitant]
     Dates: start: 19900101, end: 20080220
  7. PIOGLITAZONE [Concomitant]
     Dates: start: 19900101, end: 20080220
  8. INSULIN [Concomitant]
     Dates: start: 20080217, end: 20080318
  9. NIFEDIPINE [Concomitant]
     Dates: start: 19930101, end: 20080218
  10. CANDESARTAN [Concomitant]
     Dates: start: 19930101, end: 20080218
  11. ATENOLOL [Concomitant]
     Dates: start: 19930101, end: 20080218
  12. PRAVASTATIN [Concomitant]
     Dates: start: 19930101, end: 20080225
  13. ASPIRIN [Concomitant]
     Dates: start: 19930101, end: 20080220
  14. OXYBUTYNIN CHLORIDE [Concomitant]
     Dates: start: 20040101, end: 20080225
  15. NADROPARIN CALCIUM [Concomitant]
     Dates: start: 20071221
  16. ENOXAPARIN SODIUM [Concomitant]
     Dates: start: 20080218, end: 20080218
  17. LORAZEPAM [Concomitant]
     Dates: start: 20071221
  18. MAGNESIUM SULFATE [Concomitant]
     Dates: start: 20080204, end: 20080215
  19. HYALURONATE SODIUM [Concomitant]
     Dates: start: 20080205, end: 20080215
  20. VITAMIN A [Concomitant]
     Dates: start: 20080205, end: 20080320
  21. PREDNISONE TAB [Concomitant]
     Dates: start: 20080215, end: 20080303
  22. TIENAM [Concomitant]
     Dates: start: 20080225, end: 20080227
  23. CIPROFLOXACIN HCL [Concomitant]
     Dates: start: 20080228, end: 20080306
  24. ALBUMIN (HUMAN) [Concomitant]
     Dates: start: 20080221, end: 20080305
  25. FUROSEMIDE [Concomitant]
     Dates: start: 20080221, end: 20080305
  26. TOREM [Concomitant]
     Dates: start: 20080306
  27. ALLOPURINOL [Concomitant]
     Dates: start: 20080215
  28. TASMADERM [Concomitant]
     Route: 065

REACTIONS (3)
  - ANOREXIA [None]
  - DERMATITIS ACNEIFORM [None]
  - DIARRHOEA [None]
